FAERS Safety Report 8431533-9 (Version None)
Quarter: 2012Q2

REPORT INFORMATION
  Report Type: 
  Country: None (occurrence: None)
  Receive Date: 20120607
  Receipt Date: 20120607
  Transmission Date: 20120825
  Serious: Yes (Other)
  Sender: FDA-Public Use
  Company Number: None

PATIENT
  Age: 87 Year
  Sex: Female
  Weight: 58.9676 kg

DRUGS (1)
  1. SPIRONOLACTONE [Suspect]
     Indication: SWELLING
     Dosage: 1 TAB DAILY , AM DAILY
     Dates: start: 20120302, end: 20120308

REACTIONS (4)
  - WEIGHT INCREASED [None]
  - FEAR [None]
  - DYSPNOEA [None]
  - SWELLING [None]
